FAERS Safety Report 17478755 (Version 1)
Quarter: 2020Q1

REPORT INFORMATION
  Report Type: Spontaneous
  Country: CA (occurrence: CA)
  Receive Date: 20200229
  Receipt Date: 20200229
  Transmission Date: 20200409
  Serious: Yes (Hospitalization, Other)
  Sender: FDA-Public Use
  Company Number: CA-TEVA-2020-CA-1190979

PATIENT
  Age: 96 Year
  Sex: Female

DRUGS (20)
  1. NITROGLYCERIN. [Suspect]
     Active Substance: NITROGLYCERIN
     Indication: PRODUCT USED FOR UNKNOWN INDICATION
     Route: 065
  2. XALATAN [Suspect]
     Active Substance: LATANOPROST
     Indication: PRODUCT USED FOR UNKNOWN INDICATION
     Route: 065
  3. ZOCOR [Concomitant]
     Active Substance: SIMVASTATIN
  4. LEVOTHYROXINE. [Concomitant]
     Active Substance: LEVOTHYROXINE
  5. METFORMIN [Suspect]
     Active Substance: METFORMIN HYDROCHLORIDE
     Indication: PRODUCT USED FOR UNKNOWN INDICATION
     Route: 065
  6. ACLIDINIUM BROMIDE. [Suspect]
     Active Substance: ACLIDINIUM BROMIDE
     Indication: PRODUCT USED FOR UNKNOWN INDICATION
     Route: 055
  7. SYNTHROID [Suspect]
     Active Substance: LEVOTHYROXINE SODIUM
     Indication: PRODUCT USED FOR UNKNOWN INDICATION
     Route: 065
  8. NUCALA [Suspect]
     Active Substance: MEPOLIZUMAB
     Indication: ASTHMA
     Dosage: 100 MILLIGRAM DAILY;
     Route: 042
  9. PILOCARPINE. [Suspect]
     Active Substance: PILOCARPINE
     Indication: PRODUCT USED FOR UNKNOWN INDICATION
     Route: 065
  10. TECTA [Suspect]
     Active Substance: PANTOPRAZOLE MAGNESIUM
     Indication: PRODUCT USED FOR UNKNOWN INDICATION
     Dosage: 40 MILLIGRAM DAILY;
  11. QVAR [Suspect]
     Active Substance: BECLOMETHASONE DIPROPIONATE
     Indication: PRODUCT USED FOR UNKNOWN INDICATION
     Route: 055
  12. BETAXOLOL HYDROCHLORIDE. [Suspect]
     Active Substance: BETAXOLOL HYDROCHLORIDE
     Indication: PRODUCT USED FOR UNKNOWN INDICATION
     Route: 065
  13. OMNARIS [Suspect]
     Active Substance: CICLESONIDE
     Indication: PRODUCT USED FOR UNKNOWN INDICATION
     Route: 045
  14. METFORMIN [Concomitant]
     Active Substance: METFORMIN HYDROCHLORIDE
  15. FORMOTEROL FOR INHALATION [Suspect]
     Active Substance: FORMOTEROL
     Indication: PRODUCT USED FOR UNKNOWN INDICATION
     Route: 065
  16. GLYCOPYRRONIUM BROMIDE [Suspect]
     Active Substance: GLYCOPYRRONIUM
     Indication: PRODUCT USED FOR UNKNOWN INDICATION
     Route: 042
  17. SALBUTAMOL [Suspect]
     Active Substance: ALBUTEROL
     Indication: PRODUCT USED FOR UNKNOWN INDICATION
     Route: 065
  18. MOGADON [Suspect]
     Active Substance: NITRAZEPAM
     Indication: PRODUCT USED FOR UNKNOWN INDICATION
     Route: 065
  19. NITROJECT [Suspect]
     Active Substance: NITROGLYCERIN
     Indication: PRODUCT USED FOR UNKNOWN INDICATION
     Route: 042
  20. NITRAZEPAM [Concomitant]
     Active Substance: NITRAZEPAM

REACTIONS (30)
  - Wheezing [Recovering/Resolving]
  - Productive cough [Recovering/Resolving]
  - Pulmonary congestion [Recovering/Resolving]
  - Crepitations [Recovering/Resolving]
  - Sputum discoloured [Recovering/Resolving]
  - Dizziness [Recovering/Resolving]
  - Haemorrhage [Recovering/Resolving]
  - Therapeutic product effect incomplete [Recovering/Resolving]
  - Acute myocardial infarction [Recovering/Resolving]
  - Cardiac failure congestive [Recovering/Resolving]
  - Chest discomfort [Recovering/Resolving]
  - Fall [Recovering/Resolving]
  - Transient ischaemic attack [Recovering/Resolving]
  - Wound [Recovering/Resolving]
  - Angioplasty [Recovering/Resolving]
  - Choking [Recovering/Resolving]
  - Dyspnoea [Recovering/Resolving]
  - Limb injury [Recovering/Resolving]
  - Peripheral vascular disorder [Recovering/Resolving]
  - Pulmonary oedema [Recovering/Resolving]
  - Weight increased [Recovering/Resolving]
  - Adverse drug reaction [Recovering/Resolving]
  - Coronary artery disease [Recovering/Resolving]
  - Glaucoma [Recovering/Resolving]
  - Oedema peripheral [Recovering/Resolving]
  - Tachycardia [Recovering/Resolving]
  - Urinary retention [Recovering/Resolving]
  - Asthma [Recovering/Resolving]
  - Cough [Recovering/Resolving]
  - Pulmonary embolism [Recovering/Resolving]
